FAERS Safety Report 12713584 (Version 1)
Quarter: 2016Q3

REPORT INFORMATION
  Report Type: Spontaneous
  Country: GB (occurrence: GB)
  Receive Date: 20160903
  Receipt Date: 20160903
  Transmission Date: 20161109
  Serious: Yes (Other)
  Sender: FDA-Public Use
  Company Number: GB-AUROBINDO-AUR-APL-2016-10877

PATIENT
  Age: 43 Year
  Sex: Female
  Weight: 110.67 kg

DRUGS (3)
  1. LORATADINE. [Interacting]
     Active Substance: LORATADINE
     Indication: SEASONAL ALLERGY
     Route: 065
  2. FLUOXETINE [Suspect]
     Active Substance: FLUOXETINE HYDROCHLORIDE
     Indication: ANXIETY
     Dosage: UNK
     Route: 065
  3. DAKTARIN                           /00310801/ [Interacting]
     Active Substance: MICONAZOLE NITRATE
     Indication: ORAL CANDIDIASIS
     Dosage: 2.5 ML, FOUR TIMES/DAY
     Route: 048
     Dates: start: 20160810, end: 20160811

REACTIONS (2)
  - Drug interaction [Unknown]
  - Diarrhoea [Recovering/Resolving]

NARRATIVE: CASE EVENT DATE: 20160810
